FAERS Safety Report 9439189 (Version 3)
Quarter: 2014Q1

REPORT INFORMATION
  Report Type: Spontaneous
  Country: US (occurrence: US)
  Receive Date: 20130803
  Receipt Date: 20140116
  Transmission Date: 20141002
  Serious: Yes (Hospitalization)
  Sender: FDA-Public Use
  Company Number: US-B.I. PHARMACEUTICALS,INC./RIDGEFIELD-2013-BI-23196BP

PATIENT
  Sex: Female
  Weight: 72.57 kg

DRUGS (13)
  1. PRADAXA [Suspect]
     Indication: ATRIAL FIBRILLATION
     Dosage: 300 MG
     Dates: start: 20110518, end: 20110819
  2. PRADAXA [Suspect]
     Indication: ANTICOAGULANT THERAPY
  3. ASPIRIN [Suspect]
     Dosage: 325 MG
     Route: 048
     Dates: end: 20110819
  4. ARICEPT [Concomitant]
     Indication: DEMENTIA ALZHEIMER^S TYPE
     Dosage: 10 MG
     Route: 048
  5. LEVOTHYROXINE [Concomitant]
     Indication: HYPOTHYROIDISM
     Dosage: 100 MCG
     Route: 048
  6. FEMARA [Concomitant]
     Dosage: 2.5 MG
     Route: 048
  7. LISINOPRIL [Concomitant]
     Dosage: 5 MG
     Route: 048
  8. LORTAB [Concomitant]
     Indication: PAIN
     Route: 048
  9. RISPERDAL [Concomitant]
     Indication: DEMENTIA ALZHEIMER^S TYPE
     Dosage: 0.5 MG
     Route: 048
  10. ATIVAN [Concomitant]
     Route: 048
  11. TRAMADOL [Concomitant]
  12. ENABLEX [Concomitant]
     Dosage: 15 MG
     Route: 048
  13. OXYBUTYNIN GELNIQUE [Concomitant]
     Dosage: 1 G
     Route: 061

REACTIONS (8)
  - Gastrointestinal haemorrhage [Unknown]
  - Anaemia [Unknown]
  - Thoracic haemorrhage [Unknown]
  - Renal failure acute [Unknown]
  - Pleural effusion [Unknown]
  - Sepsis syndrome [Unknown]
  - Urinary tract infection [Unknown]
  - Haemorrhagic diathesis [Unknown]
